FAERS Safety Report 16589643 (Version 1)
Quarter: 2019Q3

REPORT INFORMATION
  Report Type: Spontaneous
  Country: GR (occurrence: GR)
  Receive Date: 20190718
  Receipt Date: 20190718
  Transmission Date: 20191004
  Serious: Yes (Death)
  Sender: FDA-Public Use
  Company Number: GR-EISAI MEDICAL RESEARCH-EC-2019-059223

PATIENT
  Age: 37 Year
  Sex: Male

DRUGS (2)
  1. FYCOMPA [Suspect]
     Active Substance: PERAMPANEL
     Indication: EPILEPSY
     Route: 048
  2. BRIVIACT [Concomitant]
     Active Substance: BRIVARACETAM
     Indication: EPILEPSY
     Dosage: DOSE AND FREQUENCY NOT PROVIDED

REACTIONS (1)
  - Myocardial infarction [Fatal]

NARRATIVE: CASE EVENT DATE: 201907
